FAERS Safety Report 15828710 (Version 1)
Quarter: 2019Q1

REPORT INFORMATION
  Report Type: Spontaneous
  Country: US (occurrence: US)
  Receive Date: 20190115
  Receipt Date: 20190115
  Transmission Date: 20190417
  Serious: Yes (Other)
  Sender: FDA-Public Use
  Company Number: US-REGENERON PHARMACEUTICALS, INC.-2018-19270

PATIENT

DRUGS (10)
  1. EYLEA [Suspect]
     Active Substance: AFLIBERCEPT
     Dosage: AFLIBERCEPT #8
     Dates: start: 20160324
  2. EYLEA [Suspect]
     Active Substance: AFLIBERCEPT
     Dosage: AFLIBERCEPT #9
     Dates: start: 20160428
  3. EYLEA [Suspect]
     Active Substance: AFLIBERCEPT
     Dosage: AFLIBERCEPT #4
     Dates: start: 20151001
  4. EYLEA [Suspect]
     Active Substance: AFLIBERCEPT
     Dosage: AFLIBERCEPT #16
     Dates: start: 20161122
  5. EYLEA [Suspect]
     Active Substance: AFLIBERCEPT
     Indication: DIABETIC RETINAL OEDEMA
     Dosage: AFLIBERCEPT #1, TOTAL 12 DOSES PRIOR TO EVENT
     Dates: start: 20150611
  6. EYLEA [Suspect]
     Active Substance: AFLIBERCEPT
     Dosage: AFLIBERCEPT #2
     Dates: start: 20150716
  7. EYLEA [Suspect]
     Active Substance: AFLIBERCEPT
     Dosage: AFLIBERCEPT #11
     Dates: start: 20160707
  8. EYLEA [Suspect]
     Active Substance: AFLIBERCEPT
     Dosage: AFLIBERCEPT #12
     Dates: start: 20160901
  9. EYLEA [Suspect]
     Active Substance: AFLIBERCEPT
     Dosage: AFLIBERCEPT #15
     Dates: start: 20161020
  10. EYLEA [Suspect]
     Active Substance: AFLIBERCEPT
     Dosage: AFLIBERCEPT #17
     Dates: start: 20170420

REACTIONS (1)
  - Cataract [Unknown]
